FAERS Safety Report 19810994 (Version 5)
Quarter: 2022Q1

REPORT INFORMATION
  Report Type: Spontaneous
  Country: US (occurrence: US)
  Receive Date: 20210910
  Receipt Date: 20220315
  Transmission Date: 20220423
  Serious: Yes (Hospitalization, Other)
  Sender: FDA-Public Use
  Company Number: US-BLUEPRINT MEDICINES CORPORATION-SP-US-2021-001442

PATIENT
  Age: 69 Year
  Sex: Male

DRUGS (2)
  1. AYVAKIT [Suspect]
     Active Substance: AVAPRITINIB
     Indication: Systemic mastocytosis
     Route: 048
     Dates: start: 20190701
  2. AYVAKIT [Suspect]
     Active Substance: AVAPRITINIB
     Indication: Systemic mastocytosis
     Route: 048
     Dates: start: 202106

REACTIONS (26)
  - Ascites [Not Recovered/Not Resolved]
  - Pleural effusion [Unknown]
  - Mental impairment [Unknown]
  - Fluid retention [Unknown]
  - Hallucination, auditory [Recovering/Resolving]
  - COVID-19 [Not Recovered/Not Resolved]
  - Confusional state [Recovering/Resolving]
  - Condition aggravated [Unknown]
  - Movement disorder [Unknown]
  - Drug ineffective [Unknown]
  - Hepatomegaly [Unknown]
  - Splenomegaly [Unknown]
  - Mobility decreased [Unknown]
  - Pigmentation disorder [Unknown]
  - Platelet count increased [Unknown]
  - Hypersomnia [Unknown]
  - Asthenia [Unknown]
  - Cognitive disorder [Unknown]
  - Oedema peripheral [Unknown]
  - Off label use [Unknown]
  - Gait inability [Not Recovered/Not Resolved]
  - Weight decreased [Not Recovered/Not Resolved]
  - Delusion [Not Recovered/Not Resolved]
  - Anaemia [Not Recovered/Not Resolved]
  - Fatigue [Not Recovered/Not Resolved]
  - Tryptase increased [Recovering/Resolving]

NARRATIVE: CASE EVENT DATE: 20210701
